FAERS Safety Report 19799217 (Version 4)
Quarter: 2022Q1

REPORT INFORMATION
  Report Type: Spontaneous
  Country: US (occurrence: US)
  Receive Date: 20210907
  Receipt Date: 20220303
  Transmission Date: 20220423
  Serious: Yes (Disabling)
  Sender: FDA-Public Use
  Company Number: US-PFIZER INC-2018260639

PATIENT
  Age: 58 Year
  Sex: Female

DRUGS (4)
  1. LYRICA [Suspect]
     Active Substance: PREGABALIN
     Indication: Lumbar radiculopathy
     Dosage: 300 MG, 3X/DAY (1 CAPSULE 3 TIMES DAILY)
     Route: 048
  2. LYRICA [Suspect]
     Active Substance: PREGABALIN
     Indication: Post laminectomy syndrome
     Dosage: 300 MG, AS NEEDED (3 TIMES DAILY AS NEEDED)
     Route: 048
     Dates: start: 20190128
  3. LYRICA [Suspect]
     Active Substance: PREGABALIN
     Indication: Pain
     Dosage: 300 MG, AS NEEDED (1 CAPSULE BY MOUTH 3 TIMES DAILY AS NEEDED)
     Route: 048
  4. LYRICA [Suspect]
     Active Substance: PREGABALIN
     Indication: Fibromyalgia
     Dosage: 300 MG, 3X/DAY
     Route: 048

REACTIONS (4)
  - Fatigue [Unknown]
  - Prescribed overdose [Unknown]
  - Frustration tolerance decreased [Unknown]
  - Anxiety [Unknown]
